FAERS Safety Report 13745750 (Version 3)
Quarter: 2017Q4

REPORT INFORMATION
  Report Type: Spontaneous
  Country: JP (occurrence: JP)
  Receive Date: 20170712
  Receipt Date: 20171018
  Transmission Date: 20180320
  Serious: Yes (Life-Threatening, Other)
  Sender: FDA-Public Use
  Company Number: JP-PFIZER INC-2017298301

PATIENT
  Age: 72 Year
  Sex: Male

DRUGS (2)
  1. CISPLATIN. [Suspect]
     Active Substance: CISPLATIN
     Indication: LUNG SQUAMOUS CELL CARCINOMA STAGE III
     Dosage: 40 MG/M2, CYCLIC (DAYS 1 AND 8)
  2. DOCETAXEL. [Suspect]
     Active Substance: DOCETAXEL
     Indication: LUNG SQUAMOUS CELL CARCINOMA STAGE III
     Dosage: 30 MG/M2, CYCLIC (DAYS 1 AND 8)

REACTIONS (3)
  - Oesophagobronchial fistula [Recovering/Resolving]
  - Tumour necrosis [Recovering/Resolving]
  - Mucous membrane disorder [Recovering/Resolving]
